FAERS Safety Report 6763925-8 (Version None)
Quarter: 2010Q2

REPORT INFORMATION
  Report Type: 
  Country: None (occurrence: None)
  Receive Date: 20100608
  Receipt Date: 20100528
  Transmission Date: 20101027
  Serious: Yes (Hospitalization)
  Sender: FDA-Public Use
  Company Number: 232619J09USA

PATIENT
  Age: 47 Year
  Sex: Female
  Weight: 79 kg

DRUGS (7)
  1. REBIF [Suspect]
     Indication: MULTIPLE SCLEROSIS
     Dosage: 44 MCG, 3 IN 1 WK, SUBCUTANEOUS
     Route: 058
     Dates: start: 20061031, end: 20091113
  2. HYDROCHLOROTHIAZIDE [Concomitant]
  3. POTASSIUM [Concomitant]
  4. NEURONITIN (GABAPENTIN) [Concomitant]
  5. BACLOFEN [Concomitant]
  6. PROVIGIL [Concomitant]
  7. PAXIL [Concomitant]

REACTIONS (8)
  - COUGH [None]
  - DYSPHAGIA [None]
  - DYSPHONIA [None]
  - GOITRE [None]
  - LABORATORY TEST ABNORMAL [None]
  - THYROID CYST [None]
  - TRACHEAL DEVIATION [None]
  - VOCAL CORD DISORDER [None]
